FAERS Safety Report 11630650 (Version 1)
Quarter: 2015Q4

REPORT INFORMATION
  Report Type: Spontaneous
  Country: US (occurrence: US)
  Receive Date: 20151014
  Receipt Date: 20151014
  Transmission Date: 20160304
  Serious: No
  Sender: FDA-Public Use
  Company Number: US-BAYER-2015-439368

PATIENT
  Age: 71 Year
  Sex: Female
  Weight: 70.3 kg

DRUGS (6)
  1. CALCIUM [Concomitant]
     Active Substance: CALCIUM
  2. MIRALAX [Suspect]
     Active Substance: POLYETHYLENE GLYCOL 3350
     Indication: COLONOSCOPY
     Dosage: 14 DF, UNK
     Route: 048
     Dates: start: 20151006
  3. METAMUCIL [Concomitant]
     Active Substance: PLANTAGO SEED
  4. FISH OIL [Concomitant]
     Active Substance: FISH OIL
  5. TURMERIC [Concomitant]
     Active Substance: TURMERIC
  6. DULCOLAX (DOCUSATE SODIUM) [Concomitant]
     Active Substance: DOCUSATE SODIUM

REACTIONS (2)
  - Off label use [None]
  - Product use issue [None]

NARRATIVE: CASE EVENT DATE: 20151006
